FAERS Safety Report 22064306 (Version 2)
Quarter: 2023Q1

REPORT INFORMATION
  Report Type: Spontaneous
  Country: US (occurrence: US)
  Receive Date: 20230306
  Receipt Date: 20230314
  Transmission Date: 20230418
  Serious: Yes (Other)
  Sender: FDA-Public Use
  Company Number: US-PFIZER INC-202200783277

PATIENT
  Age: 76 Year
  Sex: Female
  Weight: 68.04 kg

DRUGS (2)
  1. VYNDAMAX [Suspect]
     Active Substance: TAFAMIDIS
     Indication: Cardiac amyloidosis
     Dosage: 61 MG, 1X/DAY (ONCE A DAY FIRST THING IN THE MORNING)
     Dates: start: 2022
  2. EZETIMIBE [Concomitant]
     Active Substance: EZETIMIBE
     Indication: Blood cholesterol abnormal
     Dosage: 10 MG
     Dates: start: 202301

REACTIONS (3)
  - Shoulder operation [Unknown]
  - Therapeutic response unexpected [Unknown]
  - Fatigue [Unknown]
